FAERS Safety Report 7388677-2 (Version None)
Quarter: 2011Q2

REPORT INFORMATION
  Report Type: 
  Country: None (occurrence: None)
  Receive Date: 20110401
  Receipt Date: 20110322
  Transmission Date: 20111010
  Serious: Yes (Death)
  Sender: FDA-Public Use
  Company Number: GB-JNJFOC-20110309314

PATIENT
  Age: 53 Year
  Sex: Male
  Weight: 55 kg

DRUGS (12)
  1. PARACETAMOL [Suspect]
     Route: 042
  2. CHLORDIAZEPOXIDE [Concomitant]
  3. PARACETAMOL [Suspect]
     Indication: PRODUCT USED FOR UNKNOWN INDICATION
  4. THIAMINE [Concomitant]
  5. PARACETAMOL [Suspect]
  6. TAZOCIN [Suspect]
     Indication: PRODUCT USED FOR UNKNOWN INDICATION
     Dosage: FOR 5 DAYS
  7. ACAMPROSATE [Concomitant]
  8. ACETAMINOPHEN AND CODEINE PHOSPHATE [Concomitant]
  9. OMEPRAZOLE [Concomitant]
  10. TERLIPRESSIN [Concomitant]
  11. ZOPICLONE [Concomitant]
  12. PABRINEX [Concomitant]

REACTIONS (4)
  - TOXICITY TO VARIOUS AGENTS [None]
  - HEPATIC FAILURE [None]
  - MULTI-ORGAN FAILURE [None]
  - HYPOTENSION [None]
